FAERS Safety Report 9840948 (Version 1)
Quarter: 2014Q1

REPORT INFORMATION
  Report Type: Spontaneous
  Country: US (occurrence: None)
  Receive Date: 20140123
  Receipt Date: 20140123
  Transmission Date: 20141002
  Serious: Yes (Death, Life-Threatening, Hospitalization, Disabling)
  Sender: FDA-Public Use
  Company Number: None

PATIENT
  Age: 69 Year
  Sex: Male
  Weight: 96.9 kg

DRUGS (1)
  1. APIXABAN [Suspect]
     Indication: DEEP VEIN THROMBOSIS

REACTIONS (5)
  - Road traffic accident [None]
  - Cerebral haemorrhage [None]
  - Nervous system disorder [None]
  - Aphasia [None]
  - Hemiparesis [None]
